FAERS Safety Report 10249849 (Version 1)
Quarter: 2014Q2

REPORT INFORMATION
  Report Type: Spontaneous
  Country: US (occurrence: US)
  Receive Date: 20140620
  Receipt Date: 20140620
  Transmission Date: 20141212
  Serious: No
  Sender: FDA-Public Use
  Company Number: US-009507513-1406USA004696

PATIENT
  Sex: Female

DRUGS (1)
  1. NEXPLANON [Suspect]
     Indication: CONTRACEPTION
     Dosage: DOSE/ FREQUENCY: 68 MG/ ONE ROD, INSERTED EVERY THREE YEARS
     Route: 059

REACTIONS (4)
  - Haemorrhage [Unknown]
  - Chromaturia [Unknown]
  - Implant site haemorrhage [Unknown]
  - Dizziness [Unknown]
